FAERS Safety Report 9927358 (Version 2)
Quarter: 2014Q2

REPORT INFORMATION
  Report Type: Spontaneous
  Country: US (occurrence: US)
  Receive Date: 20140226
  Receipt Date: 20140513
  Transmission Date: 20141212
  Serious: Yes (Death, Other)
  Sender: FDA-Public Use
  Company Number: US-GILEAD-2014-0095563

PATIENT
  Sex: Female

DRUGS (3)
  1. LETAIRIS [Suspect]
     Indication: PULMONARY HYPERTENSION
     Dosage: 5 MG, QD
     Route: 065
     Dates: start: 20110709, end: 20140130
  2. LETAIRIS [Suspect]
     Indication: SCLERODERMA
  3. DIGOXIN [Concomitant]
     Dates: start: 20131113

REACTIONS (2)
  - Respiratory failure [Fatal]
  - Shock [Fatal]
